FAERS Safety Report 7161276-3 (Version None)
Quarter: 2010Q4

REPORT INFORMATION
  Report Type: 
  Country: None (occurrence: None)
  Receive Date: 20101215
  Receipt Date: 20101206
  Transmission Date: 20110411
  Serious: Yes (Other)
  Sender: FDA-Public Use
  Company Number: US-PFIZER INC-2010166017

PATIENT
  Age: 83 Year
  Sex: Female

DRUGS (1)
  1. CELEBREX [Suspect]
     Indication: ARTHRITIS
     Dosage: UNK

REACTIONS (6)
  - DRUG DOSE OMISSION [None]
  - EYE HAEMORRHAGE [None]
  - HYPERTENSION [None]
  - MEMORY IMPAIRMENT [None]
  - PAIN [None]
  - VISUAL IMPAIRMENT [None]
